FAERS Safety Report 25064363 (Version 1)
Quarter: 2025Q1

REPORT INFORMATION
  Report Type: Spontaneous
  Country: US (occurrence: US)
  Receive Date: 20250311
  Receipt Date: 20250311
  Transmission Date: 20250408
  Serious: Yes (Hospitalization)
  Sender: CALLIDITAS THERAPEUTICS AB
  Company Number: US-Calliditas-2025CAL00633

PATIENT
  Age: 61 Year
  Sex: Male

DRUGS (1)
  1. TARPEYO [Suspect]
     Active Substance: BUDESONIDE
     Indication: IgA nephropathy
     Dosage: TAKE 1 CAPSULE (4 MG) BY MOUTH ONCE DAILY
     Route: 048
     Dates: start: 20240717

REACTIONS (3)
  - Myocardial infarction [Recovering/Resolving]
  - Product dose omission issue [Recovered/Resolved]
  - Prescribed underdose [Unknown]
